FAERS Safety Report 9633868 (Version 2)
Quarter: 2013Q4

REPORT INFORMATION
  Report Type: Spontaneous
  Country: CN (occurrence: CN)
  Receive Date: 20131021
  Receipt Date: 20131105
  Transmission Date: 20140711
  Serious: No
  Sender: FDA-Public Use
  Company Number: CN-JNJFOC-20131007583

PATIENT
  Sex: Male

DRUGS (1)
  1. FENTANYL TRANSDERMAL SYSTEM [Suspect]
     Indication: POSTOPERATIVE ANALGESIA
     Route: 062

REACTIONS (6)
  - Vomiting [Unknown]
  - Nausea [Unknown]
  - Pruritus [Unknown]
  - Off label use [Unknown]
  - Drug administered at inappropriate site [Unknown]
  - Adverse event [Unknown]
